FAERS Safety Report 6690971-5 (Version None)
Quarter: 2010Q2

REPORT INFORMATION
  Report Type: 
  Country: None (occurrence: None)
  Receive Date: 20100421
  Receipt Date: 20100408
  Transmission Date: 20101027
  Serious: Yes (Hospitalization)
  Sender: FDA-Public Use
  Company Number: JP-GENENTECH-300158

PATIENT
  Sex: Female
  Weight: 57 kg

DRUGS (12)
  1. XOLAIR [Suspect]
     Indication: ASTHMA
     Dosage: 300 MG, 1/MONTH
     Dates: start: 20090721
  2. ADVAIR DISKUS 100/50 [Concomitant]
     Indication: DRUG USE FOR UNKNOWN INDICATION
     Dosage: UNK
     Dates: start: 20090511, end: 20091125
  3. UNIPHYL [Concomitant]
     Indication: DRUG USE FOR UNKNOWN INDICATION
     Dosage: 400 MG, UNK
     Dates: start: 20090713, end: 20091125
  4. ONON [Concomitant]
     Indication: DRUG USE FOR UNKNOWN INDICATION
     Dosage: UNK
     Dates: start: 20090511, end: 20091125
  5. THEO-DUR [Concomitant]
     Indication: DRUG USE FOR UNKNOWN INDICATION
  6. PREDNISOLONE [Concomitant]
     Indication: DRUG USE FOR UNKNOWN INDICATION
  7. PREDONINE [Concomitant]
     Indication: DRUG USE FOR UNKNOWN INDICATION
     Dosage: UNK
     Dates: start: 20090511, end: 20090518
  8. METHYLCOBALAMIN [Concomitant]
     Indication: DRUG USE FOR UNKNOWN INDICATION
     Dosage: UNK
     Dates: start: 20091007, end: 20091122
  9. DEPAS [Concomitant]
     Indication: DRUG USE FOR UNKNOWN INDICATION
     Dosage: UNK
     Dates: start: 20091001, end: 20091225
  10. ONEALFA [Concomitant]
     Indication: DRUG USE FOR UNKNOWN INDICATION
     Dosage: UNK
     Dates: start: 20091120
  11. TAKEPRON [Concomitant]
     Indication: DRUG USE FOR UNKNOWN INDICATION
     Dosage: UNK
     Dates: start: 20091120, end: 20091125
  12. ALENDRONATE SODIUM [Concomitant]
     Indication: DRUG USE FOR UNKNOWN INDICATION
     Dosage: UNK
     Dates: start: 20091120, end: 20091125

REACTIONS (2)
  - ASTHMA [None]
  - VOMITING [None]
